FAERS Safety Report 5565132-3 (Version None)
Quarter: 2007Q4

REPORT INFORMATION
  Report Type: 
  Country: None (occurrence: None)
  Receive Date: 20071213
  Receipt Date: 20071213
  Transmission Date: 20080405
  Serious: Yes (Life-Threatening, Hospitalization)
  Sender: FDA-Public Use
  Company Number: None

PATIENT
  Sex: Male
  Weight: 108 kg

DRUGS (2)
  1. METFORMIN HCL [Suspect]
     Indication: TYPE 2 DIABETES MELLITUS
  2. SIMVASTATIN [Suspect]
     Indication: TYPE 2 DIABETES MELLITUS

REACTIONS (2)
  - PANCREATITIS ACUTE [None]
  - SPLENIC VEIN THROMBOSIS [None]
